FAERS Safety Report 14598232 (Version 1)
Quarter: 2018Q1

REPORT INFORMATION
  Report Type: Spontaneous
  Country: US (occurrence: US)
  Receive Date: 20180302
  Receipt Date: 20180302
  Transmission Date: 20180509
  Serious: Yes (Hospitalization)
  Sender: FDA-Public Use
  Company Number: None

PATIENT
  Age: 44 Year
  Sex: Female
  Weight: 89.4 kg

DRUGS (8)
  1. ALUMINUM-MAGNESIUM HYDROXIDE-SIMETHICONE [Concomitant]
  2. URSODEOXYCHOLIC ACID 500MG PO BID [Suspect]
     Active Substance: URSODIOL
  3. PANTAPRAZOLE [Concomitant]
     Active Substance: PANTOPRAZOLE SODIUM
  4. OBETICHOLIC ACID 5MG PO PD [Suspect]
     Active Substance: OBETICHOLIC ACID
  5. ATARAX [Concomitant]
     Active Substance: HYDROXYZINE HYDROCHLORIDE
  6. QUESTRAN [Concomitant]
     Active Substance: CHOLESTYRAMINE
  7. RIFAMPIN (RIFADIN) [Concomitant]
  8. TUMS [Concomitant]
     Active Substance: CALCIUM CARBONATE

REACTIONS (5)
  - Fatigue [None]
  - Jaundice [None]
  - Lymphadenopathy [None]
  - Nausea [None]
  - Portal vein dilatation [None]

NARRATIVE: CASE EVENT DATE: 20180108
